FAERS Safety Report 21391877 (Version 1)
Quarter: 2022Q3

REPORT INFORMATION
  Report Type: Spontaneous
  Country: NO (occurrence: NO)
  Receive Date: 20220929
  Receipt Date: 20220929
  Transmission Date: 20221026
  Serious: Yes (Other)
  Sender: FDA-Public Use
  Company Number: NO-NOMAADVRE-E2B_00080682

PATIENT
  Age: 29 Year
  Sex: Female
  Weight: 50 kg

DRUGS (8)
  1. ZYPREXA [Suspect]
     Active Substance: OLANZAPINE
     Indication: Agitation
     Dosage: UNK UNK, UNKNOWN
     Route: 065
  2. ZYPREXA [Suspect]
     Active Substance: OLANZAPINE
     Indication: Restlessness
     Dosage: UNK UNK, QOD
     Route: 065
     Dates: start: 201911, end: 20200806
  3. ZYPREXA [Suspect]
     Active Substance: OLANZAPINE
     Indication: Psychotic disorder
  4. ZYPREXA [Suspect]
     Active Substance: OLANZAPINE
     Indication: Anxiety
  5. LEVOMEPROMAZINE ORION [Concomitant]
     Indication: Product used for unknown indication
     Dosage: UNK
     Dates: start: 2014, end: 20210812
  6. VALIUM [Concomitant]
     Active Substance: DIAZEPAM
     Indication: Product used for unknown indication
     Dosage: UNK (3)
     Dates: start: 201204
  7. TRILEPTAL [Concomitant]
     Active Substance: OXCARBAZEPINE
     Indication: Epilepsy
     Dosage: UNK (2)
     Dates: start: 201902
  8. BRIVIACT [Concomitant]
     Active Substance: BRIVARACETAM
     Indication: Epilepsy
     Dosage: UNK (3)
     Dates: start: 201910

REACTIONS (6)
  - Myoclonic epilepsy [Recovered/Resolved]
  - Epilepsy [Recovered/Resolved]
  - Muscle spasms [Unknown]
  - Lethargy [Recovered/Resolved]
  - Muscle twitching [Unknown]
  - Fatigue [Unknown]

NARRATIVE: CASE EVENT DATE: 20200802
